FAERS Safety Report 15116105 (Version 1)
Quarter: 2018Q3

REPORT INFORMATION
  Report Type: Spontaneous
  Country: NL (occurrence: NL)
  Receive Date: 20180706
  Receipt Date: 20180706
  Transmission Date: 20181010
  Serious: Yes (Hospitalization, Other)
  Sender: FDA-Public Use
  Company Number: NL-AUROBINDO-AUR-APL-2017-06900

PATIENT
  Age: 44 Year
  Sex: Female

DRUGS (1)
  1. IBUPROFEN FILM?COATED TABLETS [Suspect]
     Active Substance: IBUPROFEN
     Indication: DYSMENORRHOEA
     Dosage: 400 MILLIGRAM, ONCE A DAY
     Route: 048
     Dates: start: 200603, end: 200603

REACTIONS (2)
  - Overdose [Unknown]
  - Haemolytic uraemic syndrome [Unknown]

NARRATIVE: CASE EVENT DATE: 200603
